FAERS Safety Report 8268451-5 (Version None)
Quarter: 2012Q2

REPORT INFORMATION
  Report Type: 
  Country: None (occurrence: None)
  Receive Date: 20120409
  Receipt Date: 20120405
  Transmission Date: 20120825
  Serious: Yes (Hospitalization, Other)
  Sender: FDA-Public Use
  Company Number: DE-ABBOTT-11P-062-0882797-00

PATIENT
  Weight: 100 kg

DRUGS (1)
  1. HUMIRA [Suspect]
     Indication: RHEUMATOID ARTHRITIS
     Route: 058
     Dates: end: 20111104

REACTIONS (16)
  - MYELITIS [None]
  - HEMIPLEGIA [None]
  - MYELITIS TRANSVERSE [None]
  - DYSAESTHESIA [None]
  - CSF PROTEIN INCREASED [None]
  - ABDOMINAL PAIN UPPER [None]
  - SPINAL CORD INFECTION [None]
  - URINARY TRACT INFECTION [None]
  - URGE INCONTINENCE [None]
  - ABASIA [None]
  - SPINAL CORD DISORDER [None]
  - SENSORY LOSS [None]
  - MOBILITY DECREASED [None]
  - DYSSTASIA [None]
  - PARAPARESIS [None]
  - ASTROCYTOMA [None]
